FAERS Safety Report 5655786-5 (Version None)
Quarter: 2008Q1

REPORT INFORMATION
  Report Type: 
  Country: None (occurrence: None)
  Receive Date: 20080307
  Receipt Date: 20080226
  Transmission Date: 20080703
  Serious: Yes (Other)
  Sender: FDA-Public Use
  Company Number: US-PFIZER INC-2008004893

PATIENT
  Sex: Female
  Weight: 90.9 kg

DRUGS (6)
  1. CHANTIX [Suspect]
     Indication: SMOKING CESSATION THERAPY
     Dates: start: 20070101, end: 20070101
  2. XANAX [Concomitant]
  3. BACLOFEN [Concomitant]
  4. SINEQUAN [Concomitant]
  5. MS CONTIN [Concomitant]
  6. CARDIOVASCULAR SYSTEM DRUGS [Concomitant]

REACTIONS (3)
  - AORTIC ANEURYSM [None]
  - ARTERIAL OCCLUSIVE DISEASE [None]
  - DRUG INEFFECTIVE [None]
